FAERS Safety Report 6607425-4 (Version None)
Quarter: 2010Q1

REPORT INFORMATION
  Report Type: 
  Country: None (occurrence: None)
  Receive Date: 20100301
  Receipt Date: 20100218
  Transmission Date: 20100710
  Serious: Yes (Hospitalization)
  Sender: FDA-Public Use
  Company Number: FR-JNJFOC-20100209103

PATIENT
  Age: 16 Year
  Sex: Male

DRUGS (1)
  1. TRETINOIN [Suspect]
     Indication: ACNE
     Route: 061

REACTIONS (1)
  - NEUROPATHY PERIPHERAL [None]
